FAERS Safety Report 16148649 (Version 1)
Quarter: 2019Q2

REPORT INFORMATION
  Report Type: Spontaneous
  Country: US (occurrence: US)
  Receive Date: 20190402
  Receipt Date: 20190402
  Transmission Date: 20190711
  Serious: Yes (Other)
  Sender: FDA-Public Use
  Company Number: PHHY2019US069701

PATIENT
  Age: 46 Year
  Sex: Male

DRUGS (6)
  1. DEXAMETHASONE. [Concomitant]
     Active Substance: DEXAMETHASONE
     Indication: BIRDSHOT CHORIORETINOPATHY
     Dosage: 0.70 MG, UNK
     Route: 031
     Dates: start: 201410
  2. DEXAMETHASONE. [Concomitant]
     Active Substance: DEXAMETHASONE
     Dosage: 0.70 MG, UNK
     Route: 031
     Dates: start: 201409
  3. LATANOPROST. [Suspect]
     Active Substance: LATANOPROST
     Indication: UVEITIC GLAUCOMA
     Route: 065
  4. COSOPT [Suspect]
     Active Substance: DORZOLAMIDE HYDROCHLORIDE\TIMOLOL MALEATE
     Indication: UVEITIC GLAUCOMA
     Route: 065
  5. BRIMONIDINE [Suspect]
     Active Substance: BRIMONIDINE TARTRATE
     Indication: UVEITIC GLAUCOMA
     Route: 065
  6. MYCOPHENOLATE MOFETIL. [Suspect]
     Active Substance: MYCOPHENOLATE MOFETIL
     Indication: BIRDSHOT CHORIORETINOPATHY
     Route: 065

REACTIONS (2)
  - Cystoid macular oedema [Recovering/Resolving]
  - Product use in unapproved indication [Unknown]
